FAERS Safety Report 19154810 (Version 1)
Quarter: 2021Q2

REPORT INFORMATION
  Report Type: Spontaneous
  Country: US (occurrence: US)
  Receive Date: 20210419
  Receipt Date: 20210419
  Transmission Date: 20210717
  Serious: Yes (Hospitalization)
  Sender: FDA-Public Use
  Company Number: US-PROCTER_AND_GAMBLE-PH21003116

PATIENT
  Age: 6 Week
  Sex: Female

DRUGS (1)
  1. PEPTO?BISMOL MAX STRENGTH [Suspect]
     Active Substance: BISMUTH SUBSALICYLATE
     Dosage: UNK
     Route: 048

REACTIONS (16)
  - Vomiting [Recovering/Resolving]
  - Kussmaul respiration [Recovering/Resolving]
  - Pyrexia [Recovering/Resolving]
  - Faeces discoloured [Recovering/Resolving]
  - Transaminases increased [Recovering/Resolving]
  - Coagulation test abnormal [Recovering/Resolving]
  - Metabolic acidosis [Recovering/Resolving]
  - Hypokalaemia [Recovering/Resolving]
  - Hypocalcaemia [Recovering/Resolving]
  - Anaemia [Recovering/Resolving]
  - Product administered to patient of inappropriate age [Unknown]
  - Toxicity to various agents [Recovering/Resolving]
  - Anion gap increased [Recovering/Resolving]
  - Analgesic drug level increased [Recovering/Resolving]
  - Irritability [Recovering/Resolving]
  - Blood creatine phosphokinase increased [Recovering/Resolving]
